FAERS Safety Report 8411904-7 (Version None)
Quarter: 2012Q2

REPORT INFORMATION
  Report Type: 
  Country: None (occurrence: None)
  Receive Date: 20120605
  Receipt Date: 20120516
  Transmission Date: 20120825
  Serious: No
  Sender: FDA-Public Use
  Company Number: US-AMGEN-USASP2012031249

PATIENT
  Age: 28 Year
  Sex: Female

DRUGS (4)
  1. ENBREL [Suspect]
     Indication: RHEUMATOID ARTHRITIS
     Dosage: 50 MG, QWK
     Dates: start: 20120501
  2. METHOTREXATE [Concomitant]
     Dosage: UNK
  3. CENTRUM                            /00554501/ [Concomitant]
     Dosage: UNK
  4. FOLIC ACID [Concomitant]
     Dosage: UNK

REACTIONS (3)
  - HEADACHE [None]
  - FATIGUE [None]
  - SOMNOLENCE [None]
